FAERS Safety Report 5897052-9 (Version None)
Quarter: 2008Q3

REPORT INFORMATION
  Report Type: 
  Country: None (occurrence: None)
  Receive Date: 20080924
  Receipt Date: 20080917
  Transmission Date: 20090109
  Serious: Yes (Hospitalization)
  Sender: FDA-Public Use
  Company Number: AT-MERCK-0809AUT00001

PATIENT
  Age: 77 Year
  Sex: Female

DRUGS (3)
  1. FOSAMAX [Suspect]
     Indication: OSTEOPOROSIS
     Route: 067
     Dates: start: 20080801, end: 20080801
  2. FOSAMAX [Suspect]
     Route: 048
  3. ESTRIOL [Concomitant]
     Route: 067

REACTIONS (2)
  - INCORRECT ROUTE OF DRUG ADMINISTRATION [None]
  - MUCOSAL INFLAMMATION [None]
